FAERS Safety Report 18169538 (Version 1)
Quarter: 2020Q3

REPORT INFORMATION
  Report Type: Spontaneous
  Country: US (occurrence: US)
  Receive Date: 20200819
  Receipt Date: 20200819
  Transmission Date: 20201103
  Serious: No
  Sender: FDA-Public Use
  Company Number: US-CIPLA LTD.-2020US02342

PATIENT

DRUGS (1)
  1. TERBINAFINE. [Suspect]
     Active Substance: TERBINAFINE
     Indication: ONYCHOMYCOSIS
     Dosage: UNK
     Route: 065
     Dates: start: 202002, end: 20200322

REACTIONS (6)
  - Treatment noncompliance [Unknown]
  - Product use issue [Unknown]
  - Blister rupture [Unknown]
  - Rash [Not Recovered/Not Resolved]
  - Peripheral swelling [Unknown]
  - Blood blister [Unknown]

NARRATIVE: CASE EVENT DATE: 2020
